FAERS Safety Report 14614195 (Version 1)
Quarter: 2018Q1

REPORT INFORMATION
  Report Type: Spontaneous
  Country: US (occurrence: US)
  Receive Date: 20180308
  Receipt Date: 20180308
  Transmission Date: 20180509
  Serious: Yes (Hospitalization)
  Sender: FDA-Public Use
  Company Number: None

PATIENT
  Age: 48 Year
  Sex: Female
  Weight: 54.45 kg

DRUGS (1)
  1. BACTRIM DS [Suspect]
     Active Substance: SULFAMETHOXAZOLE\TRIMETHOPRIM
     Indication: URINARY TRACT INFECTION
     Dosage: ?          QUANTITY:1 TABLET(S);?
     Route: 048
     Dates: start: 20180111, end: 20180111

REACTIONS (9)
  - Asthenia [None]
  - Headache [None]
  - Pollakiuria [None]
  - Fatigue [None]
  - Dyspnoea [None]
  - Dysphagia [None]
  - Dystonia [None]
  - Nausea [None]
  - Thinking abnormal [None]

NARRATIVE: CASE EVENT DATE: 20180127
